FAERS Safety Report 16919334 (Version 16)
Quarter: 2022Q2

REPORT INFORMATION
  Report Type: Spontaneous
  Country: JP (occurrence: JP)
  Receive Date: 20191015
  Receipt Date: 20220606
  Transmission Date: 20220721
  Serious: Yes (Death, Life-Threatening, Hospitalization, Other)
  Sender: FDA-Public Use
  Company Number: JP-BRISTOL-MYERS SQUIBB COMPANY-BMS-2019-097328

PATIENT
  Age: 58 Year
  Sex: Male
  Weight: 63.5 kg

DRUGS (14)
  1. NIVOLUMAB [Suspect]
     Active Substance: NIVOLUMAB
     Indication: Metastatic renal cell carcinoma
     Dosage: 240 MILLIGRAM
     Route: 041
     Dates: start: 20190806, end: 20190904
  2. IPILIMUMAB [Suspect]
     Active Substance: IPILIMUMAB
     Indication: Metastatic renal cell carcinoma
     Dosage: 64 MILLIGRAM (1 MG/KG)
     Route: 041
     Dates: start: 20190806, end: 20190904
  3. RED CELLS M_A_P(IRRADIATED) [Concomitant]
     Indication: Product used for unknown indication
     Dosage: 8 IU
     Route: 065
     Dates: start: 20190805, end: 20190904
  4. MEXILETINE HYDROCHLORIDE [Concomitant]
     Active Substance: MEXILETINE HYDROCHLORIDE
     Indication: Product used for unknown indication
     Dosage: 50 MG, EVERYDAY
     Route: 048
  5. TENELIGLIPTIN [Concomitant]
     Active Substance: TENELIGLIPTIN
     Indication: Disease complication
     Dosage: 20 MG, EVERYDAY
     Route: 048
  6. FUROSEMIDE [Concomitant]
     Active Substance: FUROSEMIDE
     Indication: Disease complication
     Dosage: 20 MG, Q8H
     Route: 048
  7. ISOSORBIDE DINITRATE [Concomitant]
     Active Substance: ISOSORBIDE DINITRATE
     Indication: Disease complication
     Dosage: 40 MG, Q12H
     Route: 048
  8. LINAGLIPTIN [Concomitant]
     Active Substance: LINAGLIPTIN
     Indication: Disease complication
     Dosage: 5 MG, EVERYDAY
     Route: 048
  9. MIDODRINE HYDROCHLORIDE [Concomitant]
     Active Substance: MIDODRINE HYDROCHLORIDE
     Indication: Disease complication
     Dosage: 2 MG, EVERYDAY
     Route: 048
  10. CALONAL [Concomitant]
     Active Substance: ACETAMINOPHEN
     Indication: Disease complication
     Dosage: 300 MG, Q12H
     Route: 048
     Dates: start: 20190806
  11. METOCLOPRAMIDE [Concomitant]
     Active Substance: METOCLOPRAMIDE
     Indication: Disease complication
     Dosage: 5 MG, Q12H
     Route: 048
  12. OPHTHALM K [Concomitant]
     Indication: Disease complication
     Dosage: 1 DF IN THE MORNING AND 2 DF IN THE EVENING
     Route: 048
  13. OPHTHALM K [Concomitant]
     Dosage: 3 DOSAGE FORM
     Route: 048
  14. MEXITIL [Concomitant]
     Active Substance: MEXILETINE HYDROCHLORIDE
     Indication: Disease complication
     Dosage: 50 MILLIGRAM, QD
     Route: 048

REACTIONS (5)
  - Hepatitis fulminant [Fatal]
  - Dehydration [Not Recovered/Not Resolved]
  - Acute kidney injury [Not Recovered/Not Resolved]
  - Diabetes insipidus [Unknown]
  - Hypophysitis [Unknown]

NARRATIVE: CASE EVENT DATE: 20190101
